FAERS Safety Report 23942168 (Version 1)
Quarter: 2024Q2

REPORT INFORMATION
  Report Type: Other
  Country: GR (occurrence: GR)
  Receive Date: 20240605
  Receipt Date: 20240605
  Transmission Date: 20240716
  Serious: Yes (Hospitalization, Other)
  Sender: FDA-Public Use
  Company Number: GR-B.Braun Medical Inc.-2157801

PATIENT
  Age: 30 Year
  Sex: Female

DRUGS (4)
  1. METRONIDAZOLE [Suspect]
     Active Substance: METRONIDAZOLE
     Indication: Crohn^s disease
  2. CIPROFLOXACIN [Suspect]
     Active Substance: CIPROFLOXACIN
  3. GRANULOCYTE COLONY-STIMULATING FACTOR NOS [Concomitant]
     Active Substance: GRANULOCYTE COLONY-STIMULATING FACTOR NOS
  4. PIPERACILLIN SODIUM\TAZOBACTAM SODIUM [Suspect]
     Active Substance: PIPERACILLIN SODIUM\TAZOBACTAM SODIUM

REACTIONS (2)
  - Clostridium difficile infection [Recovering/Resolving]
  - Off label use [Recovering/Resolving]
